FAERS Safety Report 6956564-7 (Version None)
Quarter: 2010Q3

REPORT INFORMATION
  Report Type: 
  Country: None (occurrence: None)
  Receive Date: 20100830
  Receipt Date: 20100818
  Transmission Date: 20110219
  Serious: Yes (Other)
  Sender: FDA-Public Use
  Company Number: JP-PFIZER INC-2010104213

PATIENT
  Age: 75 Year
  Sex: Male

DRUGS (2)
  1. LYRICA [Suspect]
     Indication: POST HERPETIC NEURALGIA
     Dosage: 75 MG/DAY
     Route: 048
     Dates: start: 20100705, end: 20100729
  2. LYRICA [Suspect]
     Dosage: 150 MG/DAY
     Route: 048
     Dates: start: 20100730

REACTIONS (2)
  - JOINT SWELLING [None]
  - WEIGHT INCREASED [None]
